FAERS Safety Report 5534358-7 (Version None)
Quarter: 2007Q4

REPORT INFORMATION
  Report Type: 
  Country: None (occurrence: None)
  Receive Date: 20071130
  Receipt Date: 20071113
  Transmission Date: 20080405
  Serious: Yes (Congenital Anomaly)
  Sender: FDA-Public Use
  Company Number: ADE2007-0050

PATIENT
  Sex: Female
  Weight: 3.32 kg

DRUGS (1)
  1. CIPROFLOXACIN HCL [Suspect]
     Indication: LOWER RESPIRATORY TRACT INFECTION
     Dosage: 250 MG BID PO
     Route: 048
     Dates: start: 20070215, end: 20070219

REACTIONS (2)
  - ABNORMAL PALMAR/PLANTAR CREASES [None]
  - DRUG EXPOSURE DURING PREGNANCY [None]
